FAERS Safety Report 16688882 (Version 1)
Quarter: 2019Q3

REPORT INFORMATION
  Report Type: Spontaneous
  Country: US (occurrence: US)
  Receive Date: 20190809
  Receipt Date: 20190809
  Transmission Date: 20191004
  Serious: No
  Sender: FDA-Public Use
  Company Number: US-ASTRAZENECA-2019SF00966

PATIENT
  Age: 3453 Week
  Sex: Female
  Weight: 86.2 kg

DRUGS (4)
  1. ROSUVASTATIN CALCIUM. [Suspect]
     Active Substance: ROSUVASTATIN CALCIUM
     Indication: BLOOD CHOLESTEROL INCREASED
     Dosage: GENERIC 10 MG DAILY
     Route: 048
  2. GENERIC SYNTHROID LEVOTHYROXINE [Concomitant]
     Route: 048
  3. FARXIGA [Suspect]
     Active Substance: DAPAGLIFLOZIN PROPANEDIOL
     Indication: HYPERTENSION
     Route: 048
     Dates: start: 20190707, end: 20190710
  4. GENERIC PROTONIX [Concomitant]
     Route: 048

REACTIONS (5)
  - Incontinence [Recovering/Resolving]
  - Pollakiuria [Recovering/Resolving]
  - Hypertension [Not Recovered/Not Resolved]
  - Micturition urgency [Recovering/Resolving]
  - Nasal congestion [Not Recovered/Not Resolved]

NARRATIVE: CASE EVENT DATE: 20190709
